FAERS Safety Report 11271729 (Version 7)
Quarter: 2016Q2

REPORT INFORMATION
  Report Type: Spontaneous
  Country: JP (occurrence: JP)
  Receive Date: 20150715
  Receipt Date: 20160612
  Transmission Date: 20160815
  Serious: Yes (Hospitalization, Other)
  Sender: FDA-Public Use
  Company Number: JP-UCBSA-2015022182

PATIENT
  Age: 3 Year
  Sex: Male
  Weight: 9.5 kg

DRUGS (27)
  1. E KEPPRA [Suspect]
     Active Substance: LEVETIRACETAM
     Indication: EPILEPSY
     Dosage: UNK
     Route: 048
     Dates: start: 201211
  2. GASTER [Concomitant]
     Active Substance: FAMOTIDINE
     Indication: PRODUCT USED FOR UNKNOWN INDICATION
     Dosage: UNK
     Route: 048
     Dates: start: 20150603, end: 2015
  3. SODIUM VALPROATE [Concomitant]
     Active Substance: VALPROATE SODIUM
     Indication: PRODUCT USED FOR UNKNOWN INDICATION
     Dosage: UNK
     Route: 048
     Dates: start: 201305
  4. SINGULAIR [Concomitant]
     Active Substance: MONTELUKAST SODIUM
     Dosage: UNK
  5. MIYA-BM [Concomitant]
     Active Substance: CLOSTRIDIUM BUTYRICUM SPORES STRAIN M-55
     Indication: PRODUCT USED FOR UNKNOWN INDICATION
     Dosage: UNK
     Route: 048
  6. MEPTIN [Concomitant]
     Active Substance: PROCATEROL HYDROCHLORIDE
     Indication: PRODUCT USED FOR UNKNOWN INDICATION
     Route: 055
  7. L CARTIN [Concomitant]
     Active Substance: LEVOCARNITINE HYDROCHLORIDE
     Dosage: UNK
     Route: 048
     Dates: start: 201404
  8. PULSMARIN A [Concomitant]
     Active Substance: AMBROXOL HYDROCHLORIDE
     Indication: PRODUCT USED FOR UNKNOWN INDICATION
     Dosage: UNK
     Route: 048
  9. TRICLORYL [Concomitant]
     Active Substance: TRICLOFOS SODIUM
     Indication: PRODUCT USED FOR UNKNOWN INDICATION
     Dosage: UNK
     Route: 048
  10. E KEPPRA [Suspect]
     Active Substance: LEVETIRACETAM
     Dosage: 230 MG, 2X/DAY (BID)
     Route: 048
     Dates: start: 20150307
  11. AZUNOL [Concomitant]
     Active Substance: SODIUM GUALENATE
     Indication: PRODUCT USED FOR UNKNOWN INDICATION
     Dosage: UNK
     Route: 061
  12. E KEPPRA [Suspect]
     Active Substance: LEVETIRACETAM
     Dosage: 550 MG, ONCE DAILY (QD)
     Route: 048
     Dates: start: 201404, end: 201412
  13. GASTER [Concomitant]
     Active Substance: FAMOTIDINE
     Dosage: UNK
     Route: 048
     Dates: start: 2015
  14. EURODIN [Concomitant]
     Active Substance: ESTAZOLAM
     Indication: PRODUCT USED FOR UNKNOWN INDICATION
     Dosage: UNK
     Route: 048
     Dates: start: 20150612
  15. INTAL [Concomitant]
     Active Substance: CROMOLYN SODIUM
     Indication: PRODUCT USED FOR UNKNOWN INDICATION
     Route: 055
  16. TULOBUTEROL [Concomitant]
     Active Substance: TULOBUTEROL
     Indication: PRODUCT USED FOR UNKNOWN INDICATION
     Dosage: UNK
     Route: 062
     Dates: start: 2014
  17. FERRIC PYROPHOSPHATE [Concomitant]
     Active Substance: FERRIC PYROPHOSPHATE
     Indication: PRODUCT USED FOR UNKNOWN INDICATION
     Dosage: UNK
     Route: 048
     Dates: start: 201503
  18. DEPAKENE [Concomitant]
     Active Substance: VALPROIC ACID
     Indication: PRODUCT USED FOR UNKNOWN INDICATION
     Dosage: UNK
     Route: 048
     Dates: start: 20130525
  19. GASMOTIN [Concomitant]
     Active Substance: MOSAPRIDE CITRATE
     Dosage: UNK
     Route: 048
     Dates: start: 2015
  20. ZINC OXIDE. [Concomitant]
     Active Substance: ZINC OXIDE
     Indication: PRODUCT USED FOR UNKNOWN INDICATION
     Dosage: UNK
     Route: 061
  21. L CARTIN [Concomitant]
     Active Substance: LEVOCARNITINE HYDROCHLORIDE
     Indication: PRODUCT USED FOR UNKNOWN INDICATION
     Dosage: UNK
     Route: 048
  22. GASMOTIN [Concomitant]
     Active Substance: MOSAPRIDE CITRATE
     Indication: PRODUCT USED FOR UNKNOWN INDICATION
     Dosage: UNK
     Route: 048
     Dates: start: 20150603, end: 2015
  23. SINGULAIR [Concomitant]
     Active Substance: MONTELUKAST SODIUM
     Indication: PRODUCT USED FOR UNKNOWN INDICATION
     Dosage: UNK
     Route: 048
     Dates: start: 20140421
  24. PHENOBAL [Concomitant]
     Active Substance: PHENOBARBITAL
     Indication: PRODUCT USED FOR UNKNOWN INDICATION
     Dosage: UNK
     Route: 048
     Dates: end: 201305
  25. CARBOCISTEINE [Concomitant]
     Active Substance: CARBOCYSTEINE
     Indication: PRODUCT USED FOR UNKNOWN INDICATION
     Dosage: UNK
     Route: 048
  26. BUDESONIDE. [Concomitant]
     Active Substance: BUDESONIDE
     Indication: PRODUCT USED FOR UNKNOWN INDICATION
     Dosage: UNK
     Route: 055
  27. ZONISAMIDE. [Concomitant]
     Active Substance: ZONISAMIDE
     Indication: EPILEPSY
     Dosage: UNK
     Dates: start: 201412, end: 201503

REACTIONS (4)
  - Pyrexia [Recovered/Resolved]
  - Gastrooesophageal reflux disease [Not Recovered/Not Resolved]
  - Pneumonia aspiration [Recovered/Resolved]
  - Blood creatine phosphokinase increased [Unknown]

NARRATIVE: CASE EVENT DATE: 20150428
